FAERS Safety Report 5915150-8 (Version None)
Quarter: 2008Q4

REPORT INFORMATION
  Report Type: 
  Country: None (occurrence: None)
  Receive Date: 20081010
  Receipt Date: 20081001
  Transmission Date: 20090506
  Serious: Yes (Death, Hospitalization)
  Sender: FDA-Public Use
  Company Number: US-AVENTIS-200812646DE

PATIENT
  Age: 72 Year
  Sex: Female

DRUGS (9)
  1. TAXOTERE [Suspect]
     Dosage: DOSE QUANTITY: 179
     Dates: start: 20080505
  2. TAXOTERE [Suspect]
     Dosage: DOSE QUANTITY: 186
     Dates: end: 20080529
  3. CYCLOPHOSPHAMIDE [Suspect]
     Dosage: DOSE QUANTITY: 1110
     Dates: start: 20080202
  4. CYCLOPHOSPHAMIDE [Suspect]
     Dosage: DOSE QUANTITY: 1090
     Dates: end: 20080413
  5. DOXORUBICIN HCL [Suspect]
     Dosage: DOSE QUANTITY: 111
     Dates: start: 20080202
  6. DOXORUBICIN HCL [Suspect]
     Dosage: DOSE QUANTITY: 109
     Dates: end: 20080413
  7. FORTECORTIN                        /00016001/ [Concomitant]
     Indication: DRUG USE FOR UNKNOWN INDICATION
     Dosage: DOSE: NOT REPORTED
     Dates: start: 20080202, end: 20080530
  8. ZOFRAN [Concomitant]
     Indication: DRUG USE FOR UNKNOWN INDICATION
     Dosage: DOSE: NOT REPORTED
     Dates: start: 20080202, end: 20080601
  9. UROMITEXAN [Concomitant]
     Indication: DRUG USE FOR UNKNOWN INDICATION
     Dosage: DOSE: NOT REPORTED
     Dates: start: 20080202, end: 20080415

REACTIONS (4)
  - CHRONIC LYMPHOCYTIC LEUKAEMIA [None]
  - DYSPNOEA [None]
  - OEDEMA [None]
  - TACHYCARDIA [None]
